FAERS Safety Report 6833334-1 (Version None)
Quarter: 2010Q3

REPORT INFORMATION
  Report Type: 
  Country: None (occurrence: None)
  Receive Date: 20100712
  Receipt Date: 20100701
  Transmission Date: 20110219
  Serious: Yes (Other)
  Sender: FDA-Public Use
  Company Number: PHHY2010TR38612

PATIENT
  Sex: Female
  Weight: 65 kg

DRUGS (2)
  1. CERTICAN [Suspect]
     Indication: RENAL TRANSPLANT
     Dosage: 1.5 MG, DAILY
     Dates: start: 20100302
  2. CERTICAN [Suspect]
     Dosage: 2.25 MG, DAILY
     Dates: start: 20100622

REACTIONS (3)
  - COUGH [None]
  - DYSPNOEA [None]
  - INTERSTITIAL LUNG DISEASE [None]
